FAERS Safety Report 7753995-2 (Version None)
Quarter: 2011Q3

REPORT INFORMATION
  Report Type: 
  Country: None (occurrence: None)
  Receive Date: 20110915
  Receipt Date: 20110906
  Transmission Date: 20111222
  Serious: Yes (Other)
  Sender: FDA-Public Use
  Company Number: US-ACTELION-A-US2011-53772

PATIENT

DRUGS (3)
  1. ADCIRCA [Concomitant]
  2. REMODULIN [Suspect]
     Route: 058
  3. TRACLEER [Suspect]
     Indication: PULMONARY ARTERIAL HYPERTENSION
     Dosage: UNK MG, UNK
     Route: 048
     Dates: start: 20060321

REACTIONS (1)
  - PAIN [None]
